FAERS Safety Report 5973024-0 (Version None)
Quarter: 2008Q4

REPORT INFORMATION
  Report Type: 
  Country: None (occurrence: None)
  Receive Date: 20081126
  Receipt Date: 20081126
  Transmission Date: 20090506
  Serious: Yes (Life-Threatening, Hospitalization)
  Sender: FDA-Public Use
  Company Number: None

PATIENT
  Age: 62 Year
  Sex: Male
  Weight: 99 kg

DRUGS (12)
  1. WARFARIN SODIUM [Suspect]
     Indication: ATRIAL FIBRILLATION
     Dosage: DAILY PO
     Route: 048
  2. ASPIRIN [Suspect]
     Indication: ACUTE MYOCARDIAL INFARCTION
     Dosage: 81MG DAILY PO
     Route: 048
  3. PRAVASTATIN [Concomitant]
  4. METOPROLOL TARTRATE [Concomitant]
  5. DIOVAN [Concomitant]
  6. ASPIRIN [Concomitant]
  7. HYDROCHLOROTHIAZIDE [Concomitant]
  8. PRAZSOIN HCL [Concomitant]
  9. OMEPRAZOLE [Concomitant]
  10. METFORMIN HCL [Concomitant]
  11. COUMADIN [Concomitant]
  12. NITROGLYCERIN [Concomitant]

REACTIONS (5)
  - BLOOD PRESSURE INCREASED [None]
  - HEADACHE [None]
  - HEMIPARESIS [None]
  - HYPERSOMNIA [None]
  - SOMNOLENCE [None]
